FAERS Safety Report 19953290 (Version 1)
Quarter: 2021Q4

REPORT INFORMATION
  Report Type: Spontaneous
  Country: US (occurrence: US)
  Receive Date: 20211013
  Receipt Date: 20211013
  Transmission Date: 20220303
  Serious: No
  Sender: FDA-Public Use
  Company Number: None

PATIENT
  Age: 66 Year
  Sex: Female
  Weight: 66.6 kg

DRUGS (22)
  1. FROVATRIPTAN SUCCINATE [Suspect]
     Active Substance: FROVATRIPTAN SUCCINATE
     Indication: Migraine
     Dosage: ?          QUANTITY:1 TABLET(S);
     Route: 048
     Dates: start: 20070131, end: 20210925
  2. PROPRANOLOL [Concomitant]
     Active Substance: PROPRANOLOL HYDROCHLORIDE
  3. SPIRONOLACTONE [Concomitant]
     Active Substance: SPIRONOLACTONE
  4. PROGESTERONE [Concomitant]
     Active Substance: PROGESTERONE
  5. TEMAZEPAM [Concomitant]
     Active Substance: TEMAZEPAM
  6. ALLEGRA [Concomitant]
     Active Substance: FEXOFENADINE HYDROCHLORIDE
  7. BENADRYL [Concomitant]
     Active Substance: DIPHENHYDRAMINE HYDROCHLORIDE
  8. GLUCOSAMINE CHONDROITIN MSM [Concomitant]
  9. FISH OIL [Concomitant]
     Active Substance: FISH OIL
  10. SUPER OMEGA 3 FISH OIL [Concomitant]
  11. VITAMIN B COMPLEX [Concomitant]
     Active Substance: CYANOCOBALAMIN\DEXPANTHENOL\NIACINAMIDE\PYRIDOXINE HYDROCHLORIDE\RIBOFLAVIN 5^-PHOSPHATE SODIUM\THIA
  12. ASCORBIC ACID\RUTIN [Concomitant]
     Active Substance: ASCORBIC ACID\RUTIN
  13. VITAMIN D-3/K27 [Concomitant]
  14. VITAMIN A [Concomitant]
     Active Substance: VITAMIN A
  15. PYCNOGENOL (PINE BARK EXTRACT) [Concomitant]
  16. ASTAXANTHIN [Concomitant]
     Active Substance: ASTAXANTHIN
  17. COENZYME Q10 [Concomitant]
     Active Substance: DIETARY SUPPLEMENT\UBIDECARENONE
  18. QUERCETIN [Concomitant]
     Active Substance: QUERCETIN
  19. FEVERFEW [Concomitant]
     Active Substance: FEVERFEW
  20. ZINC [Concomitant]
     Active Substance: ZINC
  21. THEANINE [Concomitant]
     Active Substance: THEANINE
  22. MELATONIN [Concomitant]
     Active Substance: MELATONIN

REACTIONS (5)
  - Nausea [None]
  - Therapeutic product effect incomplete [None]
  - Head discomfort [None]
  - Product substitution issue [None]
  - Suspected product quality issue [None]

NARRATIVE: CASE EVENT DATE: 20210925
